FAERS Safety Report 11157931 (Version 5)
Quarter: 2019Q4

REPORT INFORMATION
  Report Type: Spontaneous
  Country: JP (occurrence: JP)
  Receive Date: 20150603
  Receipt Date: 20191218
  Transmission Date: 20200122
  Serious: Yes (Hospitalization, Other)
  Sender: FDA-Public Use
  Company Number: JP-AMGEN-JPNSP2015052630

PATIENT
  Age: 74 Year
  Sex: Female

DRUGS (1)
  1. RANMARK [Suspect]
     Active Substance: DENOSUMAB
     Indication: METASTASES TO BONE
     Dosage: 120 MILLIGRAM
     Route: 065
     Dates: start: 2012

REACTIONS (1)
  - Atypical femur fracture [Not Recovered/Not Resolved]

NARRATIVE: CASE EVENT DATE: 20150525
